FAERS Safety Report 25022885 (Version 1)
Quarter: 2025Q1

REPORT INFORMATION
  Report Type: Spontaneous
  Country: CN (occurrence: CN)
  Receive Date: 20250228
  Receipt Date: 20250228
  Transmission Date: 20250408
  Serious: Yes (Death, Other)
  Sender: STRIDES
  Company Number: CN-STRIDES ARCOLAB LIMITED-2025SP002425

PATIENT
  Age: 40 Year
  Sex: Male

DRUGS (6)
  1. HYDROCORTISONE [Suspect]
     Active Substance: HYDROCORTISONE
     Indication: Pulmonary embolism
     Route: 065
     Dates: start: 20220129
  2. HEPARIN [Suspect]
     Active Substance: HEPARIN SODIUM
     Indication: Pulmonary embolism
     Route: 065
     Dates: start: 20220129
  3. CISPLATIN [Concomitant]
     Active Substance: CISPLATIN
     Indication: Malignant pleural effusion
     Dates: start: 202109
  4. BEVACIZUMAB [Concomitant]
     Active Substance: BEVACIZUMAB
     Indication: Malignant pleural effusion
     Dates: start: 202109
  5. CATEQUENTINIB [Concomitant]
     Active Substance: CATEQUENTINIB
     Indication: Malignant pleural effusion
     Route: 048
     Dates: start: 20211204
  6. BRIGATINIB [Concomitant]
     Active Substance: BRIGATINIB
     Indication: Lung adenocarcinoma stage IV
     Route: 065
     Dates: start: 20210915, end: 2021

REACTIONS (2)
  - Dyspnoea [Fatal]
  - Drug ineffective for unapproved indication [Fatal]
